FAERS Safety Report 24608954 (Version 1)
Quarter: 2024Q4

REPORT INFORMATION
  Report Type: Spontaneous
  Country: AU (occurrence: AU)
  Receive Date: 20241112
  Receipt Date: 20241112
  Transmission Date: 20250115
  Serious: Yes (Life-Threatening, Hospitalization, Other)
  Sender: BRAEBURN PHARMACEUTICALS
  Company Number: AU-BRAEBURN INC-2020BBN00032

PATIENT
  Age: 49 Year
  Sex: Female

DRUGS (2)
  1. BUPRENORPHINE [Suspect]
     Active Substance: BUPRENORPHINE
     Indication: Product used for unknown indication
     Dosage: 128 MILLIGRAM, MONTHLY
     Route: 058
  2. NORSPAN [Concomitant]
     Active Substance: BUPRENORPHINE
     Indication: Product used for unknown indication
     Dosage: 10 MICROGRAM, QH
     Route: 062

REACTIONS (18)
  - Generalised tonic-clonic seizure [Unknown]
  - Depressed level of consciousness [Unknown]
  - Acute respiratory failure [Unknown]
  - Hyponatraemia [Unknown]
  - Sedation [Recovered/Resolved]
  - Respiratory depression [Recovered/Resolved]
  - Hypokalaemia [Unknown]
  - Hypochloraemia [Unknown]
  - Hypocalcaemia [Unknown]
  - Hypophosphataemia [Unknown]
  - Gait disturbance [Unknown]
  - Confusional state [Unknown]
  - Liver function test increased [Unknown]
  - Somnolence [Unknown]
  - Labelled drug-food interaction medication error [Unknown]
  - Incorrect dose administered [Unknown]
  - Unintentional use for unapproved indication [Unknown]
  - Vomiting [Unknown]
